FAERS Safety Report 8095039-1 (Version None)
Quarter: 2012Q1

REPORT INFORMATION
  Report Type: 
  Country: None (occurrence: None)
  Receive Date: 20120131
  Receipt Date: 20120131
  Transmission Date: 20120608
  Serious: Yes (Hospitalization, Disabling)
  Sender: FDA-Public Use
  Company Number: None

PATIENT
  Age: 78 Year
  Sex: Male

DRUGS (2)
  1. WARFARIN SODIUM [Suspect]
     Indication: ATRIAL FIBRILLATION
     Dosage: 4 MG
     Route: 048
  2. WARFARIN SODIUM [Concomitant]
     Dosage: 3 MG
     Route: 048

REACTIONS (5)
  - DYSPNOEA [None]
  - URINARY RETENTION [None]
  - THROMBOSIS [None]
  - HAEMATURIA [None]
  - ABDOMINAL PAIN [None]
